FAERS Safety Report 6716883-6 (Version None)
Quarter: 2010Q2

REPORT INFORMATION
  Report Type: 
  Country: None (occurrence: None)
  Receive Date: 20100510
  Receipt Date: 20100505
  Transmission Date: 20101027
  Serious: Yes (Other)
  Sender: FDA-Public Use
  Company Number: US-CEPHALON-2010002580

PATIENT
  Age: 21 Year
  Sex: Male

DRUGS (3)
  1. NUVIGIL [Suspect]
     Indication: BIPOLAR DISORDER
     Route: 048
     Dates: start: 20091017, end: 20091021
  2. NUVIGIL [Suspect]
     Indication: ATTENTION DEFICIT/HYPERACTIVITY DISORDER
  3. SEROQUEL [Concomitant]
     Indication: BIPOLAR DISORDER

REACTIONS (3)
  - DYSPNOEA [None]
  - RASH [None]
  - STEVENS-JOHNSON SYNDROME [None]
